FAERS Safety Report 24544838 (Version 1)
Quarter: 2024Q4

REPORT INFORMATION
  Report Type: Spontaneous
  Country: GB (occurrence: GB)
  Receive Date: 20241024
  Receipt Date: 20241024
  Transmission Date: 20250114
  Serious: Yes (Other)
  Sender: ROCHE
  Company Number: None

PATIENT
  Sex: Female

DRUGS (1)
  1. TOCILIZUMAB [Suspect]
     Active Substance: TOCILIZUMAB
     Indication: Product used for unknown indication
     Route: 065

REACTIONS (7)
  - Hyperhidrosis [Unknown]
  - Weight increased [Unknown]
  - Malaise [Unknown]
  - Dyspnoea [Unknown]
  - Joint swelling [Unknown]
  - Pyrexia [Unknown]
  - Chills [Unknown]
